FAERS Safety Report 4825014-9 (Version None)
Quarter: 2005Q4

REPORT INFORMATION
  Report Type: 
  Country: None (occurrence: None)
  Receive Date: 20051108
  Receipt Date: 20051026
  Transmission Date: 20060501
  Serious: Yes (Death)
  Sender: FDA-Public Use
  Company Number: 219000

PATIENT
  Sex: 0

DRUGS (4)
  1. MABTHERA(RITUXIMAB) CONC FOR SOLUTION FOR INFUSION [Suspect]
     Indication: CASTLEMAN'S DISEASE
     Dosage: 375 MG/M2, 4/WEEK, UNK
     Route: 065
  2. STAVUDINE (D4T) (STAVUDINE) [Concomitant]
  3. LAMIVUDINE [Concomitant]
  4. NEVIRAPINE [Concomitant]

REACTIONS (6)
  - ACIDOSIS [None]
  - ANAEMIA HAEMOLYTIC AUTOIMMUNE [None]
  - DRUG INTERACTION [None]
  - MULTI-ORGAN DISORDER [None]
  - SPLENECTOMY [None]
  - THERAPY NON-RESPONDER [None]
